FAERS Safety Report 20930353 (Version 2)
Quarter: 2022Q2

REPORT INFORMATION
  Report Type: Spontaneous
  Country: AU (occurrence: None)
  Receive Date: 20220608
  Receipt Date: 20220616
  Transmission Date: 20220721
  Serious: Yes (Hospitalization)
  Sender: FDA-Public Use
  Company Number: AU-Unichem Pharmaceuticals (USA) Inc-UCM202206-000519

PATIENT
  Age: 43 Year
  Sex: Female
  Weight: 55 kg

DRUGS (3)
  1. CLONIDINE HYDROCHLORIDE [Suspect]
     Active Substance: CLONIDINE HYDROCHLORIDE
     Indication: Overdose
     Dosage: UNKNOWN
  2. ACETAMINOPHEN\CHLORPHENIRAMINE\DEXTROMETHORPHAN [Suspect]
     Active Substance: ACETAMINOPHEN\CHLORPHENIRAMINE\DEXTROMETHORPHAN
     Indication: Overdose
     Dosage: UNKNOWN
  3. THIAMINE [Concomitant]
     Active Substance: THIAMINE
     Indication: Product used for unknown indication
     Dosage: UNKNOWN

REACTIONS (13)
  - Depressed level of consciousness [Recovered/Resolved]
  - Acute hepatic failure [Recovered/Resolved]
  - Gastrointestinal oedema [Recovered/Resolved]
  - Acute kidney injury [Recovered/Resolved]
  - Encephalopathy [Recovered/Resolved]
  - Periportal oedema [Recovered/Resolved]
  - Colitis [Recovered/Resolved]
  - Hypotension [Recovered/Resolved]
  - Bradycardia [Recovered/Resolved]
  - Coma [Recovered/Resolved]
  - Abdominal pain [Recovered/Resolved]
  - Toxicity to various agents [Unknown]
  - Overdose [Unknown]
